FAERS Safety Report 12388774 (Version 3)
Quarter: 2016Q3

REPORT INFORMATION
  Report Type: Report from Study
  Country: US (occurrence: US)
  Receive Date: 20160520
  Receipt Date: 20160907
  Transmission Date: 20161109
  Serious: Yes (Hospitalization, Other)
  Sender: FDA-Public Use
  Company Number: US-GILEAD-2016-0214520

PATIENT
  Age: 71 Year
  Sex: Female

DRUGS (2)
  1. AMBRISENTAN [Suspect]
     Active Substance: AMBRISENTAN
     Indication: PRODUCT USED FOR UNKNOWN INDICATION
     Dosage: 5 MG, QD
     Route: 065
  2. FELODIPINE. [Concomitant]
     Active Substance: FELODIPINE

REACTIONS (10)
  - Nausea [Unknown]
  - Syncope [Unknown]
  - Pericardial effusion [Unknown]
  - Weight decreased [Unknown]
  - Hypertension [Unknown]
  - Chest pain [Unknown]
  - Dizziness [Unknown]
  - Asthenia [Unknown]
  - Impaired gastric emptying [Unknown]
  - Pericarditis [Unknown]
